FAERS Safety Report 19179000 (Version 1)
Quarter: 2021Q2

REPORT INFORMATION
  Report Type: Spontaneous
  Country: US (occurrence: US)
  Receive Date: 20210423
  Receipt Date: 20210423
  Transmission Date: 20210717
  Serious: No
  Sender: FDA-Public Use
  Company Number: None

PATIENT
  Age: 32 Month
  Sex: Male
  Weight: 15.75 kg

DRUGS (2)
  1. UP AND UP CHILDRENS ALLERGY RELIEF [Suspect]
     Active Substance: CETIRIZINE HYDROCHLORIDE
     Indication: SEASONAL ALLERGY
     Dosage: ?          QUANTITY:5 ML;?
     Route: 048
     Dates: start: 20210412, end: 20210418
  2. CHLIDREN^S ONE A DAY VITAMIN [Concomitant]

REACTIONS (4)
  - Crying [None]
  - Psychomotor hyperactivity [None]
  - Aggression [None]
  - Fatigue [None]

NARRATIVE: CASE EVENT DATE: 20210419
